FAERS Safety Report 17040020 (Version 31)
Quarter: 2023Q1

REPORT INFORMATION
  Report Type: Report from Study
  Country: US (occurrence: US)
  Receive Date: 20191116
  Receipt Date: 20230131
  Transmission Date: 20230417
  Serious: Yes (Hospitalization, Other)
  Sender: FDA-Public Use
  Company Number: US-SHIRE-US201939284

PATIENT
  Sex: Male
  Weight: 163 kg

DRUGS (85)
  1. HUMAN IMMUNOGLOBULIN G [Suspect]
     Active Substance: HUMAN IMMUNOGLOBULIN G
     Indication: Immunodeficiency common variable
     Dosage: 25 GRAM, Q3WEEKS
     Route: 042
     Dates: start: 20190416
  2. HUMAN IMMUNOGLOBULIN G [Suspect]
     Active Substance: HUMAN IMMUNOGLOBULIN G
     Indication: Dehydration
     Dosage: 25 GRAM
     Route: 042
     Dates: start: 20190416
  3. HUMAN IMMUNOGLOBULIN G [Suspect]
     Active Substance: HUMAN IMMUNOGLOBULIN G
     Dosage: 25 GRAM, Q2WEEKS
     Route: 042
     Dates: start: 20190416
  4. HUMAN IMMUNOGLOBULIN G [Suspect]
     Active Substance: HUMAN IMMUNOGLOBULIN G
     Dosage: 25 GRAM, Q2WEEKS
     Route: 042
     Dates: start: 20190416
  5. HUMAN IMMUNOGLOBULIN G [Suspect]
     Active Substance: HUMAN IMMUNOGLOBULIN G
     Dosage: 25 GRAM, Q2WEEKS
     Route: 042
     Dates: start: 20190417
  6. HUMAN IMMUNOGLOBULIN G [Suspect]
     Active Substance: HUMAN IMMUNOGLOBULIN G
     Dosage: 25 GRAM
     Route: 042
     Dates: start: 20190708
  7. HUMAN IMMUNOGLOBULIN G [Suspect]
     Active Substance: HUMAN IMMUNOGLOBULIN G
     Dosage: 25 GRAM, Q2WEEKS
     Route: 042
     Dates: start: 20190709
  8. HEPARIN [Concomitant]
     Active Substance: HEPARIN SODIUM
  9. DIPHENHYDRAMINE HYDROCHLORIDE [Concomitant]
     Active Substance: DIPHENHYDRAMINE HYDROCHLORIDE
     Dosage: UNK
  10. RITUXAN [Concomitant]
     Active Substance: RITUXIMAB
  11. ATROVENT HFA [Concomitant]
     Active Substance: IPRATROPIUM BROMIDE
  12. AZELASTINE HYDROCHLORIDE [Concomitant]
     Active Substance: AZELASTINE HYDROCHLORIDE
  13. HYDROXYZINE HYDROCHLORIDE [Concomitant]
     Active Substance: HYDROXYZINE HYDROCHLORIDE
  14. FUROSEMIDE [Concomitant]
     Active Substance: FUROSEMIDE
     Route: 065
  15. EPINEPHRINE [Concomitant]
     Active Substance: EPINEPHRINE
  16. SODIUM CHLORIDE [Concomitant]
     Active Substance: SODIUM CHLORIDE
  17. LIOTHYRONINE SODIUM [Concomitant]
     Active Substance: LIOTHYRONINE SODIUM
  18. HUMULIN R [Concomitant]
     Active Substance: INSULIN HUMAN
  19. PRAZOSIN HYDROCHLORIDE [Concomitant]
     Active Substance: PRAZOSIN HYDROCHLORIDE
  20. CEFTRIAXONE [Concomitant]
     Active Substance: CEFTRIAXONE
     Route: 065
  21. AUVI-Q [Concomitant]
     Active Substance: EPINEPHRINE
  22. COMPAZINE [Concomitant]
     Active Substance: PROCHLORPERAZINE MALEATE
  23. PREDNISONE [Concomitant]
     Active Substance: PREDNISONE
  24. AFRIN [OXYMETAZOLINE] [Concomitant]
  25. ASPIRIN [Concomitant]
     Active Substance: ASPIRIN
  26. PROCRIT [Concomitant]
     Active Substance: ERYTHROPOIETIN
  27. HYDROMORPHONE [Concomitant]
     Active Substance: HYDROMORPHONE
  28. ACETAMINOPHEN [Concomitant]
     Active Substance: ACETAMINOPHEN
  29. METRONIDAZOLE [Concomitant]
     Active Substance: METRONIDAZOLE
     Route: 065
  30. SYNTHROID [Concomitant]
     Active Substance: LEVOTHYROXINE SODIUM
  31. NASONEX [Concomitant]
     Active Substance: MOMETASONE FUROATE
  32. FLUDROCORTISONE ACETATE [Concomitant]
     Active Substance: FLUDROCORTISONE ACETATE
  33. TYLENOL EXTRA STRENGTH [Concomitant]
     Active Substance: ACETAMINOPHEN
  34. SEROQUEL [Concomitant]
     Active Substance: QUETIAPINE FUMARATE
  35. HUMALOG [Concomitant]
     Active Substance: INSULIN LISPRO
  36. OXYGEN [Concomitant]
     Active Substance: OXYGEN
  37. URSODIOL [Concomitant]
     Active Substance: URSODIOL
  38. RAPAFLO [Concomitant]
     Active Substance: SILODOSIN
  39. VITAMIN B [Concomitant]
     Active Substance: VITAMIN B
  40. PROMETHAZINE HYDROCHLORIDE [Concomitant]
     Active Substance: PROMETHAZINE HYDROCHLORIDE
  41. ZINC [Concomitant]
     Active Substance: ZINC
  42. BELBUCA [Concomitant]
     Active Substance: BUPRENORPHINE HYDROCHLORIDE
  43. VITAMIN D3 [Concomitant]
     Active Substance: CHOLECALCIFEROL
  44. FAMOTIDINE [Concomitant]
     Active Substance: FAMOTIDINE
  45. SODIUM CHLORIDE [Concomitant]
     Active Substance: SODIUM CHLORIDE
  46. NEXIUM I.V. [Concomitant]
     Active Substance: ESOMEPRAZOLE SODIUM
  47. XYLOMETAZOLINE HYDROCHLORIDE [Concomitant]
     Active Substance: XYLOMETAZOLINE HYDROCHLORIDE
  48. LINZESS [Concomitant]
     Active Substance: LINACLOTIDE
  49. DICYCLOMINE [Concomitant]
     Active Substance: DICYCLOMINE HYDROCHLORIDE
  50. ZOFRAN [Concomitant]
     Active Substance: ONDANSETRON HYDROCHLORIDE
  51. BACTRIM [Concomitant]
     Active Substance: SULFAMETHOXAZOLE\TRIMETHOPRIM
  52. TRAZODONE HCL [Concomitant]
     Active Substance: TRAZODONE HYDROCHLORIDE
  53. ALBUTEROL SULFATE [Concomitant]
     Active Substance: ALBUTEROL SULFATE
  54. SIMETHICONE (DIMETHICONE) [Concomitant]
     Active Substance: DIMETHICONE
  55. PYRIDOXINE HYDROCHLORIDE [Concomitant]
     Active Substance: PYRIDOXINE HYDROCHLORIDE
  56. QVAR REDIHALER [Concomitant]
     Active Substance: BECLOMETHASONE DIPROPIONATE
  57. MORPHINE [Concomitant]
     Active Substance: MORPHINE
  58. LEVOFLOXACIN [Concomitant]
     Active Substance: LEVOFLOXACIN
  59. BUMETANIDE [Concomitant]
     Active Substance: BUMETANIDE
  60. MIRALAX [Concomitant]
     Active Substance: POLYETHYLENE GLYCOL 3350
  61. NATESTO [Concomitant]
     Active Substance: TESTOSTERONE
  62. SOLU-CORTEF [Concomitant]
     Active Substance: HYDROCORTISONE SODIUM SUCCINATE
  63. CETIRIZINE [Concomitant]
     Active Substance: CETIRIZINE HYDROCHLORIDE
  64. CYMBALTA [Concomitant]
     Active Substance: DULOXETINE HYDROCHLORIDE
  65. METHADONE [Concomitant]
     Active Substance: METHADONE HYDROCHLORIDE
  66. LEVOTHYROXINE [Concomitant]
     Active Substance: LEVOTHYROXINE
  67. FENOFIBRATE [Concomitant]
     Active Substance: FENOFIBRATE
  68. MUCINEX [Concomitant]
     Active Substance: GUAIFENESIN
  69. FLUCONAZOLE [Concomitant]
     Active Substance: FLUCONAZOLE
  70. MONTELUKAST SODIUM [Concomitant]
     Active Substance: MONTELUKAST SODIUM
  71. LIPITOR [Concomitant]
     Active Substance: ATORVASTATIN CALCIUM
  72. ALBUTEROL SULFATE [Concomitant]
     Active Substance: ALBUTEROL SULFATE
  73. MORPHINE SULFATE [Concomitant]
     Active Substance: MORPHINE SULFATE
  74. ADVAIR HFA [Concomitant]
     Active Substance: FLUTICASONE PROPIONATE\SALMETEROL XINAFOATE
  75. BENADRYL ALLERGY [Concomitant]
     Active Substance: DIPHENHYDRAMINE HYDROCHLORIDE
  76. VITAMIN D2 [Concomitant]
     Active Substance: ERGOCALCIFEROL
  77. TYLENOL [Concomitant]
     Active Substance: ACETAMINOPHEN
  78. CIPRO [Concomitant]
     Active Substance: CIPROFLOXACIN HYDROCHLORIDE
  79. METFORMIN HYDROCHLORIDE [Concomitant]
     Active Substance: METFORMIN HYDROCHLORIDE
  80. CIPROFLOXACIN HYDROCHLORIDE [Concomitant]
     Active Substance: CIPROFLOXACIN HYDROCHLORIDE
  81. DILAUDID [Concomitant]
     Active Substance: HYDROMORPHONE HYDROCHLORIDE
  82. PROTONIX [Concomitant]
     Active Substance: PANTOPRAZOLE SODIUM
  83. ALBUTEROL [Concomitant]
     Active Substance: ALBUTEROL
  84. DIPHENHYDRAMINE [Concomitant]
     Active Substance: DIPHENHYDRAMINE
  85. TEFLARO [Concomitant]
     Active Substance: CEFTAROLINE FOSAMIL

REACTIONS (56)
  - Vascular device infection [Unknown]
  - Device dislocation [Unknown]
  - Osteomyelitis [Unknown]
  - Cardiac dysfunction [Unknown]
  - Rectal haemorrhage [Unknown]
  - Infusion related reaction [Recovered/Resolved]
  - Pharyngeal swelling [Unknown]
  - Headache [Recovered/Resolved]
  - Pruritus [Recovered/Resolved]
  - Hyperhidrosis [Unknown]
  - Throat irritation [Recovered/Resolved]
  - Gingivitis [Unknown]
  - Dysphonia [Unknown]
  - Catheter site discharge [Unknown]
  - Constipation [Unknown]
  - Malabsorption [Unknown]
  - Gastrointestinal sounds abnormal [Unknown]
  - Gastrointestinal tube insertion [Unknown]
  - Toothache [Recovered/Resolved]
  - Tooth abscess [Unknown]
  - Wound complication [Unknown]
  - Blood glucose increased [Unknown]
  - Productive cough [Unknown]
  - Depression [Unknown]
  - Discouragement [Unknown]
  - Diplopia [Unknown]
  - Gait disturbance [Unknown]
  - Mobility decreased [Unknown]
  - Gastrooesophageal reflux disease [Unknown]
  - Skin lesion [Unknown]
  - Mastication disorder [Unknown]
  - Tooth infection [Unknown]
  - Dehydration [Unknown]
  - Breath sounds abnormal [Unknown]
  - Epistaxis [Unknown]
  - Throat tightness [Unknown]
  - Chest pain [Unknown]
  - Muscular weakness [Unknown]
  - Abdominal distension [Unknown]
  - Rash [Unknown]
  - Pain in extremity [Unknown]
  - Dizziness [Unknown]
  - Insomnia [Unknown]
  - Pain [Unknown]
  - Nausea [Unknown]
  - Anxiety [Unknown]
  - Oedema [Unknown]
  - Chest discomfort [Unknown]
  - Asthenia [Unknown]
  - Back pain [Recovered/Resolved]
  - Fatigue [Unknown]
  - Dyspnoea [Unknown]
  - Vomiting [Unknown]
  - Diarrhoea [Unknown]
  - Abdominal pain [Recovered/Resolved]
  - Arthralgia [Recovered/Resolved]
